FAERS Safety Report 15763250 (Version 1)
Quarter: 2018Q4

REPORT INFORMATION
  Report Type: Report from Study
  Country: US (occurrence: US)
  Receive Date: 20181227
  Receipt Date: 20181227
  Transmission Date: 20190205
  Serious: Yes (Hospitalization, Other)
  Sender: FDA-Public Use
  Company Number: US-BRISTOL-MYERS SQUIBB COMPANY-BMS-2018-120282

PATIENT
  Age: 69 Year
  Sex: Female
  Weight: 43 kg

DRUGS (3)
  1. NIVOLUMAB [Suspect]
     Active Substance: NIVOLUMAB
     Indication: SMALL CELL LUNG CANCER
     Dosage: 360 MG, DAY 1 OF 21 DAY CYCLE
     Route: 042
     Dates: start: 20181102, end: 20181102
  2. ETOPOSIDE. [Suspect]
     Active Substance: ETOPOSIDE
     Indication: SMALL CELL LUNG CANCER
     Dosage: DAY 1, 2, 3 OF 21 DAY CYCLE
     Route: 042
     Dates: start: 20181102, end: 20181102
  3. CARBOPLATIN. [Suspect]
     Active Substance: CARBOPLATIN
     Indication: SMALL CELL LUNG CANCER
     Dosage: 500.5 MG, DAY 1 OF 21 DAY CYCLE
     Route: 042
     Dates: start: 20181102, end: 20181102

REACTIONS (7)
  - White blood cell count decreased [Recovering/Resolving]
  - Pneumonia viral [Recovering/Resolving]
  - Dyspnoea [Recovering/Resolving]
  - Neutrophil count decreased [Recovering/Resolving]
  - Platelet count decreased [Recovering/Resolving]
  - Lymphocyte count decreased [Recovering/Resolving]
  - Atrial fibrillation [Recovering/Resolving]

NARRATIVE: CASE EVENT DATE: 20181110
